FAERS Safety Report 12255332 (Version 1)
Quarter: 2016Q2

REPORT INFORMATION
  Report Type: Spontaneous
  Country: US (occurrence: US)
  Receive Date: 20160412
  Receipt Date: 20160412
  Transmission Date: 20160815
  Serious: Yes (Other)
  Sender: FDA-Public Use
  Company Number: US-AMGEN-USASP2016043795

PATIENT
  Age: 63 Year
  Sex: Female
  Weight: 81.19 kg

DRUGS (3)
  1. XGEVA [Suspect]
     Active Substance: DENOSUMAB
     Indication: BONE DISORDER
     Dosage: UNK UNK, QMO
     Route: 065
     Dates: end: 20160301
  2. FASLODEX [Concomitant]
     Active Substance: FULVESTRANT
     Indication: OESTROGEN DEFICIENCY
     Dosage: 500 MG, QMO
     Dates: start: 201502
  3. IBRANCE [Suspect]
     Active Substance: PALBOCICLIB
     Indication: BREAST CANCER METASTATIC
     Dosage: 125 MG, QD
     Route: 048
     Dates: start: 201511

REACTIONS (6)
  - Alopecia [Not Recovered/Not Resolved]
  - Influenza like illness [Recovered/Resolved]
  - Pneumonia [Recovered/Resolved]
  - Madarosis [Not Recovered/Not Resolved]
  - Jaw disorder [Unknown]
  - Tooth disorder [Unknown]

NARRATIVE: CASE EVENT DATE: 201511
